FAERS Safety Report 9343681 (Version 1)
Quarter: 2013Q2

REPORT INFORMATION
  Report Type: Spontaneous
  Country: FR (occurrence: None)
  Receive Date: 20130610
  Receipt Date: 20130610
  Transmission Date: 20140414
  Serious: Yes (Hospitalization, Other)
  Sender: FDA-Public Use
  Company Number: ADR-2013-00956

PATIENT
  Sex: Male

DRUGS (7)
  1. BACLOFEN INTRATHECAL (BACLOFEN) AMPOULE [Suspect]
     Route: 037
     Dates: start: 201105
  2. INEXIUM/ESOMEPRAZOLE MAGNESIUM (ESOMEPRAZOLE MAGNESIUM) [Concomitant]
  3. XATRAL (ALFUZSIN HYDROCHLORIDE) [Concomitant]
  4. TAHOR (ATORVASTATIN CALCIUM) [Concomitant]
  5. KARDEGIC (ACETYLSALICYLATE LYSING) [Concomitant]
  6. MACROGOL (MACROGOL) [Concomitant]
  7. ECONAZOLE (ECONAZOLE) [Concomitant]

REACTIONS (2)
  - Abdominal pain [None]
  - Faecaloma [None]
